FAERS Safety Report 6432244-1 (Version None)
Quarter: 2009Q4

REPORT INFORMATION
  Report Type: 
  Country: None (occurrence: None)
  Receive Date: 20091109
  Receipt Date: 20091029
  Transmission Date: 20100525
  Serious: Yes (Hospitalization, Other)
  Sender: FDA-Public Use
  Company Number: US-AMGEN-QUU372058

PATIENT
  Sex: Male

DRUGS (1)
  1. ENBREL [Suspect]
     Indication: RHEUMATOID ARTHRITIS
     Route: 058

REACTIONS (12)
  - ARTHRITIS SALMONELLA [None]
  - BONE GRAFT [None]
  - DENTAL IMPLANTATION [None]
  - DRUG INEFFECTIVE [None]
  - INNER EAR DISORDER [None]
  - JOINT SWELLING [None]
  - PROSTATOMEGALY [None]
  - PSEUDOMONAS INFECTION [None]
  - RENAL FAILURE [None]
  - TESTICULAR SWELLING [None]
  - URINARY RETENTION [None]
  - URINARY TRACT INFECTION [None]
